FAERS Safety Report 7816268-5 (Version None)
Quarter: 2011Q4

REPORT INFORMATION
  Report Type: 
  Country: None (occurrence: None)
  Receive Date: 20111016
  Receipt Date: 20110922
  Transmission Date: 20120403
  Serious: Yes (Other)
  Sender: FDA-Public Use
  Company Number: US-ROCHE-801491

PATIENT
  Sex: Female

DRUGS (1)
  1. BONIVA [Suspect]
     Indication: PRODUCT USED FOR UNKNOWN INDICATION
     Route: 065

REACTIONS (4)
  - SYSTEMIC LUPUS ERYTHEMATOSUS [None]
  - BARRETT'S OESOPHAGUS [None]
  - GASTRIC DISORDER [None]
  - DYSPEPSIA [None]
